FAERS Safety Report 8392359-8 (Version None)
Quarter: 2012Q1

REPORT INFORMATION
  Report Type: 
  Country: None (occurrence: None)
  Receive Date: 20120323
  Receipt Date: 20110803
  Transmission Date: 20120608
  Serious: Yes (Other)
  Sender: FDA-Public Use
  Company Number: 163-21880-11040302

PATIENT
  Age: 86 Year
  Sex: Male

DRUGS (10)
  1. D 400 (VITAMIDYNE A AND D) [Concomitant]
  2. OCUVITE LUTEIN (PRESERVATION LUTEIN EYE VITA.+MIN.SUP.SOFTG.) [Concomitant]
  3. HYDROCHLOROTHIAZIDE [Concomitant]
  4. MEGACE [Concomitant]
  5. REVLIMID [Suspect]
     Indication: MYELODYSPLASTIC SYNDROME
     Dosage: 10 MG, QD X 28 DAYS, PO
     Route: 048
     Dates: start: 20110211
  6. GLUCOSAMINE (GLUCOSAMINE) [Concomitant]
  7. CENTRUM TABS (CENTRUM) [Concomitant]
  8. B-12 (CYANOCOBALAMIN) [Concomitant]
  9. PRAVACHOL [Concomitant]
  10. PROCRIT [Concomitant]

REACTIONS (1)
  - ANAEMIA [None]
